FAERS Safety Report 14683525 (Version 2)
Quarter: 2019Q1

REPORT INFORMATION
  Report Type: Report from Study
  Country: US (occurrence: US)
  Receive Date: 20180327
  Receipt Date: 20190121
  Transmission Date: 20190417
  Serious: No
  Sender: FDA-Public Use
  Company Number: PHEH2018US011526

PATIENT
  Sex: Male

DRUGS (1)
  1. ENTRESTO [Suspect]
     Active Substance: SACUBITRIL\VALSARTAN
     Indication: PRODUCT USED FOR UNKNOWN INDICATION
     Dosage: 1 DF(SACUBITRIL 97 MG/ VALSARTAN 103 MG), BID
     Route: 048

REACTIONS (4)
  - Asthenia [Unknown]
  - Ejection fraction abnormal [Unknown]
  - Concomitant disease aggravated [Unknown]
  - Fluid retention [Unknown]
